FAERS Safety Report 15264512 (Version 1)
Quarter: 2018Q3

REPORT INFORMATION
  Report Type: Spontaneous
  Country: US (occurrence: US)
  Receive Date: 20180723
  Receipt Date: 20180723
  Transmission Date: 20181010
  Serious: Yes (Disabling, Other)
  Sender: FDA-Public Use
  Company Number: None

PATIENT
  Age: 67 Year
  Sex: Female
  Weight: 49.5 kg

DRUGS (1)
  1. PROLIA [Suspect]
     Active Substance: DENOSUMAB
     Indication: OSTEOPOROSIS
     Route: 030
     Dates: start: 20180115

REACTIONS (5)
  - Pollakiuria [None]
  - Back pain [None]
  - Burning sensation [None]
  - Night sweats [None]
  - Limb discomfort [None]

NARRATIVE: CASE EVENT DATE: 20180501
